FAERS Safety Report 8616689-7 (Version None)
Quarter: 2012Q3

REPORT INFORMATION
  Report Type: 
  Country: None (occurrence: None)
  Receive Date: 20120823
  Receipt Date: 20120817
  Transmission Date: 20120928
  Serious: Yes (Other)
  Sender: FDA-Public Use
  Company Number: NL-GILEAD-2010-0033279

PATIENT
  Age: 53 Year
  Sex: Male

DRUGS (19)
  1. VIREAD [Suspect]
     Dosage: UNK
     Dates: start: 20050705
  2. VIREAD [Suspect]
     Dosage: UNK, QD
     Dates: start: 20080923, end: 20081014
  3. DIDANOSINE [Concomitant]
     Indication: HIV INFECTION
     Dosage: UNK
     Dates: start: 19970307
  4. DIDANOSINE [Concomitant]
     Dosage: 250 MG, QD
     Dates: start: 20030901
  5. AZT [Concomitant]
     Dosage: UNK
     Dates: start: 20050705
  6. VIREAD [Suspect]
     Indication: HIV INFECTION
     Dosage: UNK
     Dates: start: 20031117
  7. LOPINAVIR/RITONAVIR [Concomitant]
     Dosage: UNK
     Dates: start: 20070524
  8. VIREAD [Suspect]
     Dosage: 300 MG, QD
     Dates: start: 20030901
  9. VIREAD [Suspect]
     Dosage: 300 MG, QOD
     Dates: start: 20080101, end: 20080101
  10. DIDANOSINE [Concomitant]
     Dosage: UNK
     Dates: start: 20080923
  11. RALTEGRAVIR [Concomitant]
     Dosage: UNK
     Dates: start: 20081028
  12. DIDANOSINE [Concomitant]
     Dosage: UNK
     Dates: start: 20031117
  13. LOPINAVIR/RITONAVIR [Concomitant]
     Dosage: 1 DF, UNK
     Dates: start: 20031117
  14. LOPINAVIR/RITONAVIR [Concomitant]
     Dosage: UNK
     Dates: start: 20080923
  15. VIREAD [Suspect]
     Dosage: UNK
     Dates: start: 20070524
  16. DIDANOSINE [Concomitant]
     Dosage: UNK
     Dates: start: 20070524
  17. LOPINAVIR/RITONAVIR [Concomitant]
     Dosage: UNK
     Dates: start: 20081028
  18. DIDANOSINE [Concomitant]
     Dosage: UNK
     Dates: start: 20050705
  19. LOPINAVIR/RITONAVIR [Concomitant]
     Indication: HIV INFECTION
     Dosage: UNK UNK, BID
     Dates: start: 20030901

REACTIONS (3)
  - FANCONI SYNDROME ACQUIRED [None]
  - CD4 LYMPHOCYTES DECREASED [None]
  - OSTEOMALACIA [None]
